FAERS Safety Report 20629516 (Version 4)
Quarter: 2022Q2

REPORT INFORMATION
  Report Type: Spontaneous
  Country: US (occurrence: US)
  Receive Date: 20220323
  Receipt Date: 20220513
  Transmission Date: 20220721
  Serious: No
  Sender: FDA-Public Use
  Company Number: US-ORGANON-O2203USA002078

PATIENT
  Age: 37 Year
  Sex: Male

DRUGS (3)
  1. PREGNYL [Suspect]
     Active Substance: CHORIOGONADOTROPIN ALFA
     Indication: Hormone replacement therapy
     Dosage: 300UNITS 3X WEEKLY
     Dates: start: 20220318
  2. STERILE WATER [Suspect]
     Active Substance: WATER
     Dosage: UNK
     Dates: start: 20220318
  3. TESTOSTERONE [Concomitant]
     Active Substance: TESTOSTERONE
     Dosage: UNK

REACTIONS (6)
  - Product dose omission issue [Unknown]
  - Circumstance or information capable of leading to medication error [Unknown]
  - Product container issue [Unknown]
  - Product use complaint [Unknown]
  - Product leakage [Unknown]
  - No adverse event [Unknown]

NARRATIVE: CASE EVENT DATE: 20220318
